FAERS Safety Report 9450624 (Version 1)
Quarter: 2013Q3

REPORT INFORMATION
  Report Type: Spontaneous
  Country: US (occurrence: US)
  Receive Date: 20130809
  Receipt Date: 20130809
  Transmission Date: 20140515
  Serious: Yes (Other)
  Sender: FDA-Public Use
  Company Number: US-BAYER-2013-094478

PATIENT
  Sex: Female

DRUGS (1)
  1. MIRENA [Suspect]
     Dosage: 20 ?G/D, CONT
     Route: 015
     Dates: start: 201108

REACTIONS (6)
  - Rash [None]
  - Uterine perforation [None]
  - Vaginal haemorrhage [None]
  - Vaginal haemorrhage [None]
  - Polymenorrhoea [None]
  - Device issue [None]
